FAERS Safety Report 18067402 (Version 1)
Quarter: 2020Q3

REPORT INFORMATION
  Report Type: Spontaneous
  Country: ES (occurrence: ES)
  Receive Date: 20200724
  Receipt Date: 20200724
  Transmission Date: 20201103
  Serious: Yes (Other)
  Sender: FDA-Public Use
  Company Number: ES-ALLERGAN-2027473US

PATIENT
  Sex: Male

DRUGS (13)
  1. ALLOPURINOL. [Concomitant]
     Active Substance: ALLOPURINOL
  2. FLUCONAZOL [Concomitant]
     Active Substance: FLUCONAZOLE
  3. PARACETAMOL [Concomitant]
     Active Substance: ACETAMINOPHEN
  4. HIOSCINA BUTIL BROMURO [Concomitant]
  5. TAMSULOSIN [Concomitant]
     Active Substance: TAMSULOSIN
  6. CEFTAROLINE FOSAMIL ? BP [Suspect]
     Active Substance: CEFTAROLINE FOSAMIL
     Indication: STAPHYLOCOCCAL INFECTION
     Dosage: DOSE ADJUSTED BY GLOMERULAR FILTRATION (FIRST LINE OF TREATMENT)
     Route: 065
     Dates: start: 20190529, end: 20190612
  7. DAPTOMICINA ACCORD [Suspect]
     Active Substance: DAPTOMYCIN
     Indication: STAPHYLOCOCCAL INFECTION
     Dosage: 6.5 MG/KG
     Route: 065
     Dates: start: 20190529, end: 20190625
  8. FOLIC ACID. [Concomitant]
     Active Substance: FOLIC ACID
  9. PREDNISONE. [Concomitant]
     Active Substance: PREDNISONE
  10. TRAMADOL. [Concomitant]
     Active Substance: TRAMADOL
  11. BEMIPARIN [Concomitant]
     Active Substance: BEMIPARIN
  12. WARFARIN [Concomitant]
     Active Substance: WARFARIN
  13. AMLODIPINE [Concomitant]
     Active Substance: AMLODIPINE BESYLATE

REACTIONS (1)
  - Pulmonary toxicity [Unknown]
